FAERS Safety Report 4373806-5 (Version None)
Quarter: 2004Q1

REPORT INFORMATION
  Report Type: 
  Country: None (occurrence: None)
  Receive Date: 20040305
  Receipt Date: 20031119
  Transmission Date: 20041129
  Serious: Yes (Other)
  Sender: FDA-Public Use
  Company Number: 2003UW15300

PATIENT
  Age: 66 Year
  Sex: Female
  Weight: 78.9259 kg

DRUGS (3)
  1. CRESTOR [Suspect]
     Indication: BLOOD CHOLESTEROL INCREASED
     Dates: start: 20031001
  2. PROPRANOLOL [Concomitant]
  3. PRILOSEC [Concomitant]

REACTIONS (4)
  - CONSTIPATION [None]
  - FALL [None]
  - MYALGIA [None]
  - NAUSEA [None]
